FAERS Safety Report 5030456-5 (Version None)
Quarter: 2006Q2

REPORT INFORMATION
  Report Type: 
  Country: None (occurrence: None)
  Receive Date: 20060614
  Receipt Date: 20060601
  Transmission Date: 20061013
  Serious: Yes (Death, Hospitalization)
  Sender: FDA-Public Use
  Company Number: HQWYE640801JUN06

PATIENT
  Age: 78 Year
  Sex: Male

DRUGS (2)
  1. CORDARONE [Suspect]
     Dosage: 200 MG TABLET, ORAL
     Route: 048
     Dates: end: 20060324
  2. PREVISCAN (FLUINDIONE) [Suspect]
     Dosage: 20 MG, ORAL
     Route: 048
     Dates: end: 20060309

REACTIONS (9)
  - ACUTE RESPIRATORY FAILURE [None]
  - CARDIAC FAILURE [None]
  - HAEMOGLOBIN DECREASED [None]
  - HAEMOPTYSIS [None]
  - INTERNATIONAL NORMALISED RATIO INCREASED [None]
  - MELAENA [None]
  - PLATELET COUNT INCREASED [None]
  - PNEUMONITIS [None]
  - WHITE BLOOD CELL COUNT INCREASED [None]
